FAERS Safety Report 23201022 (Version 1)
Quarter: 2023Q4

REPORT INFORMATION
  Report Type: Spontaneous
  Country: GB (occurrence: GB)
  Receive Date: 20231118
  Receipt Date: 20231118
  Transmission Date: 20240110
  Serious: Yes (Disabling, Other)
  Sender: FDA-Public Use
  Company Number: None

PATIENT
  Age: 58 Year
  Sex: Female
  Weight: 66 kg

DRUGS (5)
  1. CALCITRIOL [Suspect]
     Active Substance: CALCITRIOL
     Indication: Adverse drug reaction
     Dosage: CREAM TO BE APPLIED TWICE PER DAY; ;DURATION : 5 DAYS
     Route: 065
     Dates: start: 20230907, end: 20230912
  2. CALCITRIOL [Suspect]
     Active Substance: CALCITRIOL
     Indication: Psoriasis
  3. ELIDEL [Suspect]
     Active Substance: PIMECROLIMUS
     Indication: Adverse drug reaction
     Dosage: DURATION : 35 DAYS
     Route: 065
     Dates: start: 20230720, end: 20230824
  4. ELIDEL [Suspect]
     Active Substance: PIMECROLIMUS
     Indication: Rash
  5. PREDNISOLONE [Suspect]
     Active Substance: PREDNISOLONE
     Indication: Adverse drug reaction
     Dosage: 30 MILLIGRAM DAILY; 6 X 5MG PER DAY; DURATION : 6 DAYS
     Route: 065
     Dates: start: 20230825, end: 20230831

REACTIONS (2)
  - Medication error [Unknown]
  - Topical steroid withdrawal reaction [Not Recovered/Not Resolved]

NARRATIVE: CASE EVENT DATE: 20230824
